FAERS Safety Report 4619375-3 (Version None)
Quarter: 2005Q2

REPORT INFORMATION
  Report Type: 
  Country: None (occurrence: None)
  Receive Date: 20050321
  Receipt Date: 20040329
  Transmission Date: 20051028
  Serious: Yes (Other)
  Sender: FDA-Public Use
  Company Number: 2004-03-2045

PATIENT
  Age: 50 Year
  Sex: Male
  Weight: 75.7507 kg

DRUGS (2)
  1. PEG-INTRON (PEGINTERFERON ALFA-2B) INJECTABLE POWDER [Suspect]
     Indication: HEPATITIS C
     Dosage: 120 MCG QWK, SUBCUTANEOUS
     Route: 058
     Dates: start: 20040305
  2. REBETOL [Suspect]
     Indication: HEPATITIS C
     Dosage: 1200 MG BID, ORAL
     Route: 048
     Dates: start: 20040305

REACTIONS (2)
  - INFLUENZA LIKE ILLNESS [None]
  - NEUROPATHY PERIPHERAL [None]
